FAERS Safety Report 9553751 (Version 1)
Quarter: 2013Q3

REPORT INFORMATION
  Report Type: Spontaneous
  Country: SI (occurrence: None)
  Receive Date: 20130923
  Receipt Date: 20130923
  Transmission Date: 20140515
  Serious: Yes (Hospitalization, Other)
  Sender: FDA-Public Use
  Company Number: SYM-2013-10847

PATIENT
  Age: 52 Year
  Sex: Female

DRUGS (2)
  1. BUPROPION HYDROCHLORIDE [Suspect]
     Indication: PRODUCT USED FOR UNKNOWN INDICATION
  2. DULOXETINE [Suspect]
     Indication: PRODUCT USED FOR UNKNOWN INDICATION

REACTIONS (7)
  - Palpitations [None]
  - Loss of consciousness [None]
  - Heart rate increased [None]
  - Sinus arrhythmia [None]
  - Electrocardiogram QT prolonged [None]
  - Drug interaction [None]
  - Toxicity to various agents [None]
